FAERS Safety Report 9385695 (Version 1)
Quarter: 2013Q3

REPORT INFORMATION
  Report Type: Spontaneous
  Country: IT (occurrence: IT)
  Receive Date: 20130705
  Receipt Date: 20130705
  Transmission Date: 20140515
  Serious: Yes (Hospitalization)
  Sender: FDA-Public Use
  Company Number: PHHY2013IT066384

PATIENT
  Age: 64 Year
  Sex: Male

DRUGS (3)
  1. METHYLPREDNISOLONE [Suspect]
     Dosage: 1 MG/KG/DAY
     Route: 042
  2. AZATHIOPRINE [Suspect]
     Dosage: 0.85 MG/KG
  3. CLOPIDOGREL [Concomitant]
     Indication: ANTIPLATELET THERAPY
     Dosage: 75 MG/DAY

REACTIONS (9)
  - Diabetes mellitus [Unknown]
  - Cytomegalovirus infection [Recovering/Resolving]
  - Cytomegalovirus viraemia [Recovering/Resolving]
  - Cytomegalovirus colitis [Recovering/Resolving]
  - Abdominal pain [Unknown]
  - Diarrhoea haemorrhagic [Unknown]
  - Asthenia [Unknown]
  - Pancytopenia [Unknown]
  - Drug ineffective [Unknown]
